FAERS Safety Report 20871736 (Version 1)
Quarter: 2022Q2

REPORT INFORMATION
  Report Type: Other
  Country: US (occurrence: None)
  Receive Date: 20220525
  Receipt Date: 20220525
  Transmission Date: 20220721
  Serious: Yes (Other)
  Sender: FDA-Public Use
  Company Number: US-ROCHE-3102683

PATIENT
  Sex: Male

DRUGS (1)
  1. XELODA [Suspect]
     Active Substance: CAPECITABINE
     Indication: Colorectal cancer metastatic
     Dosage: TAKE 3 TABLETS BY MOUTH IN THE MORNING AND TAKE 2 TABLETS BY MOUTH IN THE EVENING EVERY DAY 2 WE
     Route: 048

REACTIONS (1)
  - Malignant neoplasm progression [Unknown]
